FAERS Safety Report 5579214-3 (Version None)
Quarter: 2008Q1

REPORT INFORMATION
  Report Type: 
  Country: None (occurrence: None)
  Receive Date: 20080102
  Receipt Date: 20071231
  Transmission Date: 20080703
  Serious: Yes (Hospitalization)
  Sender: FDA-Public Use
  Company Number: B0501313A

PATIENT
  Age: 60 Year
  Sex: Female

DRUGS (10)
  1. BECOTIDE [Suspect]
     Indication: ASTHMA
     Route: 055
     Dates: start: 20071107
  2. NEOCODION [Suspect]
     Indication: COUGH
     Route: 048
     Dates: start: 20071107
  3. PULMOSERUM [Suspect]
     Indication: COUGH
     Route: 048
     Dates: start: 20071107
  4. CELESTONE [Suspect]
     Indication: ASTHMA
     Route: 048
     Dates: start: 20071107
  5. ESIDRIX [Suspect]
     Route: 048
  6. ACECLOFENAC [Suspect]
  7. MONOTILDIEM [Concomitant]
  8. ISOSORBIDE DINITRATE [Concomitant]
  9. AERIUS [Concomitant]
  10. ENDOTELON [Concomitant]

REACTIONS (5)
  - ABDOMINAL PAIN [None]
  - DIARRHOEA [None]
  - PANCREATITIS ACUTE [None]
  - RESPIRATORY FAILURE [None]
  - VOMITING [None]
